FAERS Safety Report 7532452-2 (Version None)
Quarter: 2011Q2

REPORT INFORMATION
  Report Type: 
  Country: None (occurrence: None)
  Receive Date: 20110607
  Receipt Date: 20110607
  Transmission Date: 20111010
  Serious: No
  Sender: FDA-Public Use
  Company Number: None

PATIENT
  Sex: Female
  Weight: 67.586 kg

DRUGS (1)
  1. ISOTRETINOIN [Suspect]
     Indication: ACNE
     Dosage: 2 BARR 936 PILLS ONCE PER DAY PO
     Route: 048
     Dates: start: 20110118, end: 20110604

REACTIONS (6)
  - ECZEMA [None]
  - TRICHORRHEXIS [None]
  - PAIN [None]
  - PAIN IN EXTREMITY [None]
  - LIP DRY [None]
  - LYMPHADENOPATHY [None]
